FAERS Safety Report 21497686 (Version 2)
Quarter: 2022Q4

REPORT INFORMATION
  Report Type: Report from Study
  Country: NL (occurrence: None)
  Receive Date: 20221024
  Receipt Date: 20221028
  Transmission Date: 20230112
  Serious: Yes (Hospitalization)
  Sender: FDA-Public Use
  Company Number: NL-ROCHE-3198678

PATIENT
  Age: 52 Year
  Sex: Male

DRUGS (5)
  1. OBINUTUZUMAB [Suspect]
     Active Substance: OBINUTUZUMAB
     Indication: Chronic lymphocytic leukaemia
     Dosage: 100 MG, D1 + 900 MG, D2) OR 1000 MG, D1; 1000 MG, D8 + D15 I.V. CYCLE 2 - 6: 1000 MG, D1 I.V DATE OF
     Route: 042
     Dates: start: 20220217
  2. VENETOCLAX [Suspect]
     Active Substance: VENETOCLAX
     Indication: Chronic lymphocytic leukaemia
     Dosage: DATE OF LAST DOSE WAS 400 MG ON 10/OCT/2022
     Route: 048
     Dates: start: 20220317
  3. DEXAMETHASONE [Concomitant]
     Active Substance: DEXAMETHASONE
  4. CEFTRIAXONE [Concomitant]
     Active Substance: CEFTRIAXONE
  5. AZITHROMYCIN [Concomitant]
     Active Substance: AZITHROMYCIN

REACTIONS (2)
  - Pyrexia [Not Recovered/Not Resolved]
  - COVID-19 [Not Recovered/Not Resolved]

NARRATIVE: CASE EVENT DATE: 20221010
